FAERS Safety Report 13129684 (Version 2)
Quarter: 2017Q1

REPORT INFORMATION
  Report Type: Spontaneous
  Country: US (occurrence: US)
  Receive Date: 20170119
  Receipt Date: 20170208
  Transmission Date: 20170428
  Serious: No
  Sender: FDA-Public Use
  Company Number: US-PFIZER INC-2017020340

PATIENT
  Age: 62 Year
  Sex: Female
  Weight: 96.15 kg

DRUGS (7)
  1. LEVOTHYROXINE. [Concomitant]
     Active Substance: LEVOTHYROXINE
     Indication: THYROID DISORDER
     Dosage: 50 UG, 1X/DAY
     Route: 048
  2. LEFLUNOMIDE. [Concomitant]
     Active Substance: LEFLUNOMIDE
     Indication: OSTEOARTHRITIS
     Dosage: 20 MG, 1X/DAY
     Route: 048
  3. LOVASTATIN. [Concomitant]
     Active Substance: LOVASTATIN
     Indication: BLOOD CHOLESTEROL ABNORMAL
     Dosage: 20MG TABLET BY MOUTH ONCE AT NIGHT
     Route: 048
     Dates: start: 2016
  4. FOLIC ACID. [Concomitant]
     Active Substance: FOLIC ACID
     Indication: MINERAL SUPPLEMENTATION
     Dosage: 1 MG, 1X/DAY
     Route: 048
  5. FOLIC ACID. [Concomitant]
     Active Substance: FOLIC ACID
     Indication: ARTHRITIS
  6. PREDNISONE. [Concomitant]
     Active Substance: PREDNISONE
     Indication: JOINT SWELLING
     Dosage: 10MG, TWO TABLETS FOR 1ST 5 DAYS, NEXT 5 DAYS ONLY 10MG PILL ONCE A DAY THEN NEXT 5 DAYS A HALF PILL
     Route: 048
  7. LYRICA [Suspect]
     Active Substance: PREGABALIN
     Indication: PAIN IN EXTREMITY
     Dosage: 50 MG, 3X/DAY
     Route: 048
     Dates: start: 201611

REACTIONS (1)
  - Drug ineffective [Recovering/Resolving]
